FAERS Safety Report 16196580 (Version 1)
Quarter: 2019Q2

REPORT INFORMATION
  Report Type: Spontaneous
  Country: DE (occurrence: DE)
  Receive Date: 20190415
  Receipt Date: 20190415
  Transmission Date: 20190711
  Serious: Yes (Other)
  Sender: FDA-Public Use
  Company Number: PHHY2019DE081800

PATIENT
  Sex: Male

DRUGS (1)
  1. EVEROLIMUS. [Suspect]
     Active Substance: EVEROLIMUS
     Indication: GERM CELL CANCER METASTATIC
     Dosage: 10 MG, QD (CONTINUOUSLY WITH A CYCLE DURATION OF 21 DAYS)
     Route: 048

REACTIONS (1)
  - Dyspnoea [Unknown]
